FAERS Safety Report 5216957-5 (Version None)
Quarter: 2007Q1

REPORT INFORMATION
  Report Type: 
  Country: None (occurrence: None)
  Receive Date: 20070124
  Receipt Date: 20070115
  Transmission Date: 20070707
  Serious: Yes (Other)
  Sender: FDA-Public Use
  Company Number: US-JNJFOC-20070104057

PATIENT
  Sex: Female

DRUGS (2)
  1. IMODIUM ADVANCED [Suspect]
  2. IMODIUM ADVANCED [Suspect]
     Indication: IRRITABLE BOWEL SYNDROME

REACTIONS (3)
  - DEPENDENCE [None]
  - GASTROOESOPHAGEAL REFLUX DISEASE [None]
  - IRRITABLE BOWEL SYNDROME [None]
